FAERS Safety Report 7733088-0 (Version None)
Quarter: 2011Q3

REPORT INFORMATION
  Report Type: 
  Country: None (occurrence: None)
  Receive Date: 20110907
  Receipt Date: 20110826
  Transmission Date: 20111222
  Serious: Yes (Hospitalization)
  Sender: FDA-Public Use
  Company Number: FR-MERCK-1108USA03615

PATIENT
  Age: 44 Year
  Sex: Male

DRUGS (2)
  1. ANTINEOPLASTIC (UNSPECIFIED) [Concomitant]
     Indication: ACUTE MYELOID LEUKAEMIA
     Route: 065
  2. PRIMAXIN [Suspect]
     Indication: FEBRILE BONE MARROW APLASIA
     Route: 042
     Dates: start: 20110620, end: 20110708

REACTIONS (1)
  - THROMBOCYTOSIS [None]
